FAERS Safety Report 12844824 (Version 2)
Quarter: 2016Q4

REPORT INFORMATION
  Report Type: Spontaneous
  Country: GB (occurrence: GB)
  Receive Date: 20161013
  Receipt Date: 20161024
  Transmission Date: 20170207
  Serious: Yes (Hospitalization, Other)
  Sender: FDA-Public Use
  Company Number: GB-MYLANLABS-2016M1043152

PATIENT

DRUGS (2)
  1. WARFARIN [Suspect]
     Active Substance: WARFARIN
     Indication: ATRIAL FIBRILLATION
     Dosage: 1 MG, UNK
     Route: 065
  2. PICOLAX                            /00755101/ [Concomitant]
     Indication: LAXATIVE SUPPORTIVE CARE
     Dosage: UNK
     Dates: start: 2015

REACTIONS (10)
  - International normalised ratio increased [Unknown]
  - Contusion [Unknown]
  - Haemorrhage [Unknown]
  - Pain [Unknown]
  - Malaise [Unknown]
  - Swelling [Unknown]
  - Headache [Unknown]
  - Movement disorder [Unknown]
  - Aspiration joint [Unknown]
  - Abdominal discomfort [Unknown]

NARRATIVE: CASE EVENT DATE: 2006
